FAERS Safety Report 8000734-6 (Version None)
Quarter: 2011Q4

REPORT INFORMATION
  Report Type: 
  Country: None (occurrence: None)
  Receive Date: 20111222
  Receipt Date: 20111219
  Transmission Date: 20120403
  Serious: Yes (Death)
  Sender: FDA-Public Use
  Company Number: GB-BRISTOL-MYERS SQUIBB COMPANY-16217143

PATIENT

DRUGS (1)
  1. YERVOY [Suspect]

REACTIONS (1)
  - NEOPLASM MALIGNANT [None]
